FAERS Safety Report 7457279-1 (Version None)
Quarter: 2011Q2

REPORT INFORMATION
  Report Type: 
  Country: None (occurrence: None)
  Receive Date: 20110504
  Receipt Date: 20110424
  Transmission Date: 20111010
  Serious: Yes (Hospitalization)
  Sender: FDA-Public Use
  Company Number: JP-NOVOPROD-327179

PATIENT
  Age: 56 Year
  Sex: Male

DRUGS (8)
  1. VICTOZA [Suspect]
     Indication: TYPE 2 DIABETES MELLITUS
     Dosage: 0.3 MG, QD
     Route: 058
     Dates: start: 20110323
  2. VICTOZA [Suspect]
     Dosage: UNK
     Dates: start: 20110426
  3. CRESTOR [Concomitant]
  4. NORVASC [Concomitant]
  5. VICTOZA [Suspect]
     Dosage: 0.9 MG, QD
     Route: 058
     Dates: start: 20110403, end: 20110424
  6. AMARYL [Concomitant]
  7. NU-LOTAN [Concomitant]
  8. VICTOZA [Suspect]
     Dosage: 0.6 MG, QD
     Route: 058

REACTIONS (1)
  - ILEUS [None]
